FAERS Safety Report 20443727 (Version 1)
Quarter: 2022Q1

REPORT INFORMATION
  Report Type: Spontaneous
  Country: US (occurrence: US)
  Receive Date: 20220208
  Receipt Date: 20220208
  Transmission Date: 20220423
  Serious: No
  Sender: FDA-Public Use
  Company Number: US-LANNETT COMPANY, INC.-US-2022LAN000009

PATIENT

DRUGS (3)
  1. DOXEPIN HYDROCHLORIDE [Suspect]
     Active Substance: DOXEPIN HYDROCHLORIDE
     Dosage: 3 MG, QD
     Route: 065
     Dates: start: 202110
  2. DOXEPIN HYDROCHLORIDE [Suspect]
     Active Substance: DOXEPIN HYDROCHLORIDE
     Dosage: 25 MG, CAPSULE ONCE DAILY
     Route: 065
     Dates: start: 202111
  3. DOXEPIN HYDROCHLORIDE [Suspect]
     Active Substance: DOXEPIN HYDROCHLORIDE
     Dosage: CUT IT OFF IN HALF
     Route: 065

REACTIONS (3)
  - Pruritus [Unknown]
  - Somnolence [Unknown]
  - Insomnia [Unknown]
